FAERS Safety Report 8612715-X (Version None)
Quarter: 2012Q3

REPORT INFORMATION
  Report Type: 
  Country: None (occurrence: None)
  Receive Date: 20120822
  Receipt Date: 20110817
  Transmission Date: 20120928
  Serious: No
  Sender: FDA-Public Use
  Company Number: US-ASTRAZENECA-2011SE49709

PATIENT
  Sex: Female

DRUGS (25)
  1. TOPROL-XL [Suspect]
     Route: 048
     Dates: start: 20050307
  2. METROGEL [Concomitant]
     Dosage: 1 % APPLY TO AFFECTED SKIN DAILY
     Dates: start: 20110201
  3. GABAPENTIN [Concomitant]
     Indication: PAIN
     Route: 048
     Dates: start: 20101012
  4. GABAPENTIN [Concomitant]
     Route: 048
     Dates: start: 20100121
  5. AMBIEN [Concomitant]
     Indication: INSOMNIA
     Route: 048
     Dates: start: 20100112
  6. VICTOZA [Concomitant]
     Dosage: 6 MG/ML 1.8 MG ONCE DAILY
     Route: 058
     Dates: start: 20100805
  7. ZOVIRAX [Concomitant]
     Indication: HERPES ZOSTER
     Route: 048
     Dates: start: 20101012
  8. LANSOPRAZOLE [Concomitant]
     Indication: GASTROOESOPHAGEAL REFLUX DISEASE
     Route: 048
     Dates: start: 20100331
  9. LASIX [Concomitant]
     Route: 048
     Dates: start: 20100112
  10. LOPID [Concomitant]
     Dosage: ONE TAB PO 30 MIN BEFORE AM AND PM MEALS DAILY
     Route: 048
     Dates: start: 20060427
  11. LOSARTAN POTASSIUM [Concomitant]
     Indication: HYPERTENSION
     Route: 048
     Dates: start: 20100331
  12. PRAVACHOL [Concomitant]
     Route: 048
     Dates: start: 20070319
  13. SPIRONOLACTONE [Concomitant]
     Route: 048
     Dates: start: 20050307
  14. SEROQUEL XR [Suspect]
     Indication: DEPRESSION
     Route: 048
     Dates: start: 20100923
  15. CARTIA XT [Concomitant]
     Indication: HYPERTENSION
     Route: 048
     Dates: start: 20050307
  16. CYMBALTA [Concomitant]
     Dosage: 30/60 MG CAPSULE PO DAILY
     Route: 048
     Dates: start: 20090128
  17. PROPRANOLOL [Concomitant]
     Indication: TREMOR
     Route: 048
     Dates: start: 20110412
  18. TRAZODONE HCL [Concomitant]
     Dosage: HALF TO ONE PO QHS
     Route: 048
     Dates: start: 20090122
  19. SYMBICORT [Suspect]
     Indication: ASTHMA
     Dosage: 160/45 MCG TWO INHALATIONS TWICE DAILY
     Route: 055
     Dates: start: 20090930
  20. ASPIRIN [Concomitant]
     Indication: CEREBROVASCULAR ACCIDENT
     Route: 048
     Dates: start: 20090414
  21. ATROVENT [Concomitant]
     Dosage: TWO INHALATIONS FOUR TIMES A DAY
     Route: 055
     Dates: start: 20110707
  22. BUPROPION HCL [Concomitant]
     Route: 048
     Dates: start: 20050615
  23. HYDROCODONE BITARTRATE AND ACETAMINOPHEN [Concomitant]
     Indication: PAIN
     Dosage: 5/500 MG TWO PO Q FOUR TO SIX HR PRN
     Route: 048
     Dates: start: 20100315
  24. MOBIC [Concomitant]
     Route: 048
     Dates: start: 20110214
  25. VENTOLIN HFA [Concomitant]
     Indication: DYSPNOEA
     Dosage: TWO PUFFS EVERY FOUR TO SIX HOUR PRN
     Dates: start: 20110707

REACTIONS (7)
  - GASTROOESOPHAGEAL REFLUX DISEASE [None]
  - HERPES ZOSTER [None]
  - BLOOD PRESSURE [None]
  - TREMOR [None]
  - INSOMNIA [None]
  - SKIN DISORDER [None]
  - PAIN [None]
